FAERS Safety Report 9822134 (Version 4)
Quarter: 2014Q1

REPORT INFORMATION
  Report Type: Report from Study
  Country: JP (occurrence: JP)
  Receive Date: 20140116
  Receipt Date: 20140310
  Transmission Date: 20141002
  Serious: Yes (Hospitalization)
  Sender: FDA-Public Use
  Company Number: JP-GLAXOSMITHKLINE-B0948931A

PATIENT
  Age: 73 Year
  Sex: Male
  Weight: 100 kg

DRUGS (2)
  1. VOTRIENT 200MG [Suspect]
     Indication: LIPOSARCOMA
     Dosage: 800MG PER DAY
     Route: 048
     Dates: start: 20130412, end: 20130627
  2. VOTRIENT 200MG [Suspect]
     Indication: LIPOSARCOMA
     Dosage: 600MG PER DAY
     Route: 048
     Dates: start: 20130628, end: 20131115

REACTIONS (5)
  - Pericardial effusion [Recovering/Resolving]
  - Fatigue [Recovering/Resolving]
  - Decreased appetite [Recovering/Resolving]
  - Hypertension [Recovering/Resolving]
  - Dysgeusia [Recovering/Resolving]
